FAERS Safety Report 19400021 (Version 1)
Quarter: 2021Q2

REPORT INFORMATION
  Report Type: Spontaneous
  Country: US (occurrence: US)
  Receive Date: 20210610
  Receipt Date: 20210610
  Transmission Date: 20210717
  Serious: Yes (Other)
  Sender: FDA-Public Use
  Company Number: US-ROCHE-2844803

PATIENT
  Age: 61 Year
  Sex: Female

DRUGS (1)
  1. GAVRETO [Suspect]
     Active Substance: PRALSETINIB
     Indication: LUNG NEOPLASM MALIGNANT
     Dosage: TAKE 4 CAPSULES (400 MG TOTAL) BY MOUTH DAILY ] TAKE 2 CAPSULES (200MG TOTAL) BY MOUTH DAILY?INTERRU
     Route: 048
     Dates: start: 20201130

REACTIONS (1)
  - Herpes zoster [Not Recovered/Not Resolved]

NARRATIVE: CASE EVENT DATE: 20210526
